FAERS Safety Report 12375650 (Version 1)
Quarter: 2016Q2

REPORT INFORMATION
  Report Type: Spontaneous
  Country: US (occurrence: None)
  Receive Date: 20160516
  Receipt Date: 20160516
  Transmission Date: 20160815
  Serious: Yes (Other)
  Sender: FDA-Public Use
  Company Number: None

PATIENT
  Age: 23 Year
  Sex: Female
  Weight: 65.77 kg

DRUGS (1)
  1. NUVARING [Suspect]
     Active Substance: ETHINYL ESTRADIOL\ETONOGESTREL
     Indication: DYSMENORRHOEA
     Dosage: CHANGE RING MONTHL VAGINAL
     Route: 067
     Dates: start: 20110513, end: 20160513

REACTIONS (3)
  - Vulvovaginal dryness [None]
  - Personal relationship issue [None]
  - Sexual dysfunction [None]

NARRATIVE: CASE EVENT DATE: 20160513
